FAERS Safety Report 5959576-5 (Version None)
Quarter: 2008Q4

REPORT INFORMATION
  Report Type: 
  Country: None (occurrence: None)
  Receive Date: 20081117
  Receipt Date: 20081105
  Transmission Date: 20090506
  Serious: Yes (Death, Other)
  Sender: FDA-Public Use
  Company Number: GXKR2008NL10596

PATIENT
  Age: 15 Day
  Weight: 0.7 kg

DRUGS (2)
  1. DEXAMETHASONE [Suspect]
     Indication: BRONCHOPULMONARY DYSPLASIA
     Dosage: 0.25MG/KG, QD
  2. DOPAMINE HCL [Concomitant]

REACTIONS (5)
  - BLOOD CORTISOL DECREASED [None]
  - BLOOD PRESSURE SYSTOLIC DECREASED [None]
  - BLOOD THYROID STIMULATING HORMONE DECREASED [None]
  - REVERSE TRI-IODOTHYRONINE DECREASED [None]
  - TRI-IODOTHYRONINE DECREASED [None]
